FAERS Safety Report 5090965-X (Version None)
Quarter: 2006Q3

REPORT INFORMATION
  Report Type: 
  Country: None (occurrence: None)
  Receive Date: 20060823
  Receipt Date: 20060815
  Transmission Date: 20061208
  Serious: Yes (Hospitalization)
  Sender: FDA-Public Use
  Company Number: US-2006-009187

PATIENT
  Age: 59 Year
  Sex: Female

DRUGS (5)
  1. CAMPATH [Suspect]
     Indication: BONE MARROW CONDITIONING REGIMEN
     Dosage: 50 MG/D D-7 TO D-3, INTRAVENOUS
     Route: 042
     Dates: start: 20050705, end: 20050708
  2. FLUDARA [Suspect]
     Indication: BONE MARROW CONDITIONING REGIMEN
     Dosage: 25MG/M2/D D-5 TO D, INTRAVENOUS
     Route: 042
     Dates: start: 20050707, end: 20050711
  3. CYCLOPHOSPHAMIDE [Suspect]
     Indication: BONE MARROW CONDITIONING REGIMEN
     Dosage: 45MG/KG/D D-4+D-3, INTRAVENOUS
     Route: 042
     Dates: start: 20050708, end: 20050709
  4. MESNA [Suspect]
     Indication: BONE MARROW CONDITIONING REGIMEN
     Dosage: TOTAL DAILY DOSE 48 MG/KG, INTRAVENOUS
     Route: 042
     Dates: start: 20050708, end: 20050709
  5. LEUKINE [Suspect]
     Indication: COLONY STIMULATING FACTOR THERAPY
     Dosage: 250UG/D UNTIL ANC}1000X3D,
     Dates: start: 20050715

REACTIONS (1)
  - CARDIAC FAILURE CONGESTIVE [None]
